FAERS Safety Report 19777655 (Version 1)
Quarter: 2021Q3

REPORT INFORMATION
  Report Type: Spontaneous
  Country: FR (occurrence: FR)
  Receive Date: 20210902
  Receipt Date: 20210902
  Transmission Date: 20211014
  Serious: Yes (Hospitalization)
  Sender: FDA-Public Use
  Company Number: FR-ABBVIE-21K-056-4064155-00

PATIENT
  Age: 47 Year
  Sex: Male

DRUGS (1)
  1. SEVOFLURANE. [Suspect]
     Active Substance: SEVOFLURANE
     Indication: ANAESTHESIA
     Route: 042
     Dates: start: 20210730, end: 20210810

REACTIONS (1)
  - Nephrogenic diabetes insipidus [Not Recovered/Not Resolved]

NARRATIVE: CASE EVENT DATE: 202108
